FAERS Safety Report 4845158-5 (Version None)
Quarter: 2005Q4

REPORT INFORMATION
  Report Type: 
  Country: None (occurrence: None)
  Receive Date: 20051205
  Receipt Date: 20051031
  Transmission Date: 20060501
  Serious: Yes (Hospitalization, Other)
  Sender: FDA-Public Use
  Company Number: ES-BRISTOL-MYERS SQUIBB COMPANY-13163126

PATIENT
  Age: 45 Year
  Sex: Male
  Weight: 48 kg

DRUGS (4)
  1. DIDANOSINE [Suspect]
  2. EFAVIRENZ [Suspect]
  3. TENOFOVIR [Suspect]
  4. LAMIVUDINE [Suspect]

REACTIONS (4)
  - CHOLESTASIS [None]
  - CYTOLYTIC HEPATITIS [None]
  - LACTIC ACIDOSIS [None]
  - RASH [None]
